FAERS Safety Report 5752620-X (Version None)
Quarter: 2008Q2

REPORT INFORMATION
  Report Type: 
  Country: None (occurrence: None)
  Receive Date: 20080529
  Receipt Date: 20080523
  Transmission Date: 20081010
  Serious: Yes (Other)
  Sender: FDA-Public Use
  Company Number: US-ASTRAZENECA-2008UW10601

PATIENT
  Age: 78 Year
  Sex: Male
  Weight: 70.4 kg

DRUGS (4)
  1. PULMICORT RESPULES [Suspect]
     Indication: LUNG DISORDER
     Dosage: 0.5 MG/2 ML
     Route: 055
     Dates: start: 20071201
  2. ALBUTEROL [Concomitant]
  3. IPRATROPIUM BROMIDE [Concomitant]
  4. VERAPAMIL [Concomitant]

REACTIONS (4)
  - DRUG INEFFECTIVE [None]
  - DYSPNOEA [None]
  - HEART RATE INCREASED [None]
  - OXYGEN CONSUMPTION INCREASED [None]
